FAERS Safety Report 21202801 (Version 1)
Quarter: 2022Q3

REPORT INFORMATION
  Report Type: Spontaneous
  Country: US (occurrence: US)
  Receive Date: 20220811
  Receipt Date: 20220811
  Transmission Date: 20221027
  Serious: No
  Sender: FDA-Public Use
  Company Number: US-OTSUKA-2021_035665

PATIENT
  Sex: Female
  Weight: 131.52 kg

DRUGS (5)
  1. REXULTI [Suspect]
     Active Substance: BREXPIPRAZOLE
     Indication: Depression
     Dosage: 1 MG
     Route: 048
     Dates: start: 20210907, end: 20211012
  2. REXULTI [Suspect]
     Active Substance: BREXPIPRAZOLE
     Indication: Generalised anxiety disorder
  3. LORAZEPAM [Concomitant]
     Active Substance: LORAZEPAM
     Indication: Product used for unknown indication
     Dosage: 1 MG, QD
     Route: 048
  4. PAROXETINE [Concomitant]
     Active Substance: PAROXETINE
     Indication: Product used for unknown indication
     Dosage: UNK
     Route: 065
  5. PROPRANOLOL [Concomitant]
     Active Substance: PROPRANOLOL HYDROCHLORIDE
     Indication: Product used for unknown indication
     Dosage: 10 MG, BID
     Route: 048

REACTIONS (3)
  - Streptococcus test positive [Unknown]
  - Aphthous ulcer [Recovered/Resolved]
  - Product use in unapproved indication [Unknown]
